FAERS Safety Report 14553359 (Version 1)
Quarter: 2018Q1

REPORT INFORMATION
  Report Type: Spontaneous
  Country: US (occurrence: US)
  Receive Date: 20180216
  Receipt Date: 20180216
  Transmission Date: 20180509
  Serious: Yes (Life-Threatening, Hospitalization, Disabling)
  Sender: FDA-Public Use
  Company Number: None

PATIENT
  Age: 63 Year
  Sex: Female
  Weight: 70.65 kg

DRUGS (27)
  1. ALBUTEROL NEB [Concomitant]
  2. HYDROCORTISONE. [Concomitant]
     Active Substance: HYDROCORTISONE
  3. VITAMIN B COMPLEX [Concomitant]
     Active Substance: CYANOCOBALAMIN\DEXPANTHENOL\NIACINAMIDE\PYRIDOXINE HYDROCHLORIDE\RIBOFLAVIN 5^-PHOSPHATE SODIUM\THIAMINE HYDROCHLORIDE\VITAMIN B COMPLEX
  4. GOLDEN PASTE [Concomitant]
  5. AZELASTINE NASAL SPRAY [Concomitant]
  6. NICOTINE. [Concomitant]
     Active Substance: NICOTINE
  7. MULTI VITAMIN [Concomitant]
     Active Substance: VITAMINS
  8. CHAMOMILE TEA [Concomitant]
     Active Substance: MATRICARIA RECUTITA
  9. DHEA [Concomitant]
     Active Substance: PRASTERONE
  10. MELATONIN [Concomitant]
     Active Substance: MELATONIN
  11. MONTELUKAST [Concomitant]
     Active Substance: MONTELUKAST SODIUM
  12. FLUTICASONE NASAL SPRAY [Concomitant]
     Active Substance: FLUTICASONE
  13. CIPROFLOXACIN. [Concomitant]
     Active Substance: CIPROFLOXACIN
  14. SPIRIVA [Concomitant]
     Active Substance: TIOTROPIUM BROMIDE MONOHYDRATE
  15. PREDNISONE. [Concomitant]
     Active Substance: PREDNISONE
  16. ADVAIR HFA [Concomitant]
     Active Substance: FLUTICASONE PROPIONATE\SALMETEROL XINAFOATE
  17. ASPIRIN. [Concomitant]
     Active Substance: ASPIRIN
  18. XANAX [Concomitant]
     Active Substance: ALPRAZOLAM
  19. DILTIAZEM. [Concomitant]
     Active Substance: DILTIAZEM
  20. BENADRYL [Concomitant]
     Active Substance: DIPHENHYDRAMINE HYDROCHLORIDE
  21. MAGNESIUM [Concomitant]
     Active Substance: MAGNESIUM
  22. HIZENTRA [Suspect]
     Active Substance: HUMAN IMMUNOGLOBULIN G
     Indication: IMMUNODEFICIENCY COMMON VARIABLE
     Dosage: QUANTITY:2 SC;OTHER FREQUENCY:ONCE A WEEK;?
     Route: 058
     Dates: start: 20171006, end: 20180124
  23. LEVOTHYROXINE. [Concomitant]
     Active Substance: LEVOTHYROXINE
  24. LEVALBUTEROL INHALER [Concomitant]
  25. TEMAZEPAM. [Concomitant]
     Active Substance: TEMAZEPAM
  26. AZELASTINE. [Concomitant]
     Active Substance: AZELASTINE HYDROCHLORIDE
  27. PROBIOTIC [Concomitant]
     Active Substance: PROBIOTICS NOS

REACTIONS (6)
  - Asthma [None]
  - Hypersensitivity [None]
  - Syncope [None]
  - Incontinence [None]
  - Asthenia [None]
  - Fatigue [None]

NARRATIVE: CASE EVENT DATE: 20180124
